FAERS Safety Report 10812442 (Version 1)
Quarter: 2015Q1

REPORT INFORMATION
  Report Type: Report from Study
  Country: US (occurrence: US)
  Receive Date: 20150218
  Receipt Date: 20150218
  Transmission Date: 20150721
  Serious: Yes (Hospitalization, Other)
  Sender: FDA-Public Use
  Company Number: US-AMGEN-USASL2015014532

PATIENT
  Age: 67 Year
  Sex: Female

DRUGS (1)
  1. ENBREL [Suspect]
     Active Substance: ETANERCEPT
     Indication: RHEUMATOID ARTHRITIS
     Dosage: 50 MG, QWK
     Route: 058
     Dates: start: 2011

REACTIONS (5)
  - Injection site pruritus [Unknown]
  - Clostridium difficile infection [Unknown]
  - Injection site swelling [Unknown]
  - Injection site reaction [Unknown]
  - Fistula repair [Unknown]

NARRATIVE: CASE EVENT DATE: 20140617
